FAERS Safety Report 17225470 (Version 1)
Quarter: 2020Q1

REPORT INFORMATION
  Report Type: Spontaneous
  Country: US (occurrence: US)
  Receive Date: 20200102
  Receipt Date: 20200102
  Transmission Date: 20200409
  Serious: No
  Sender: FDA-Public Use
  Company Number: US-SA-2020SA000418

PATIENT

DRUGS (4)
  1. PROTOPIC [Suspect]
     Active Substance: TACROLIMUS
  2. DUPIXENT [Suspect]
     Active Substance: DUPILUMAB
     Indication: DERMATITIS ATOPIC
  3. EUCRISA [Suspect]
     Active Substance: CRISABOROLE
  4. ELIDEL [Suspect]
     Active Substance: PIMECROLIMUS

REACTIONS (3)
  - Unevaluable event [Unknown]
  - Drug ineffective [Unknown]
  - Pruritus [Unknown]
